FAERS Safety Report 9002815 (Version 1)
Quarter: 2012Q4

REPORT INFORMATION
  Report Type: Spontaneous
  Country: TR (occurrence: None)
  Receive Date: 20121226
  Receipt Date: 20121226
  Transmission Date: 20130627
  Serious: Yes (Other)
  Sender: FDA-Public Use
  Company Number: TR-ACCORD-015599

PATIENT
  Age: 44 Year
  Sex: Female

DRUGS (2)
  1. LEVETIRACETAM (LEVETIRACETAM) [Suspect]
     Indication: EPILEPSY
  2. CARBAMAZEPINE (CARBAMAZEPINE) CHEWABLE TABLET [Concomitant]

REACTIONS (1)
  - Hypersexuality [None]
